FAERS Safety Report 18342686 (Version 1)
Quarter: 2020Q4

REPORT INFORMATION
  Report Type: Spontaneous
  Country: US (occurrence: US)
  Receive Date: 20201002
  Receipt Date: 20201002
  Transmission Date: 20210113
  Serious: No
  Sender: FDA-Public Use
  Company Number: None

PATIENT
  Age: 35 Year
  Sex: Male
  Weight: 80 kg

DRUGS (1)
  1. CEFTRIAXONE (CEFTRIAXONE NA 250GM/VIL INJ) [Suspect]
     Active Substance: CEFTRIAXONE SODIUM
     Indication: SYPHILIS
     Dosage: ?          OTHER ROUTE:IM?
     Dates: start: 20200727, end: 20200727

REACTIONS (4)
  - Rash [None]
  - Respiratory depression [None]
  - Pain [None]
  - Throat tightness [None]

NARRATIVE: CASE EVENT DATE: 20200727
